FAERS Safety Report 10185120 (Version 1)
Quarter: 2014Q2

REPORT INFORMATION
  Report Type: Spontaneous
  Country: US (occurrence: US)
  Receive Date: 20140521
  Receipt Date: 20140521
  Transmission Date: 20141212
  Serious: No
  Sender: FDA-Public Use
  Company Number: US-BAYER-2014-064861

PATIENT
  Age: 72 Year
  Sex: Male

DRUGS (1)
  1. ADALAT CC [Suspect]
     Dosage: DAILY DOSE 30 MG
     Route: 048

REACTIONS (1)
  - Heart rate decreased [Unknown]
